FAERS Safety Report 15524301 (Version 3)
Quarter: 2018Q4

REPORT INFORMATION
  Report Type: Report from Study
  Country: None (occurrence: US)
  Receive Date: 20181019
  Receipt Date: 20181122
  Transmission Date: 20190205
  Serious: Yes (Other)
  Sender: FDA-Public Use
  Company Number: US-ABBVIE-18K-163-2523798-00

PATIENT
  Age: 48 Year
  Sex: Female

DRUGS (4)
  1. HUMIRA [Suspect]
     Active Substance: ADALIMUMAB
     Route: 058
     Dates: start: 201801
  2. OXYCODONE [Suspect]
     Active Substance: OXYCODONE
     Indication: SPINAL OPERATION
     Dosage: 5-325 MG
     Route: 048
     Dates: start: 201809, end: 201809
  3. FLUOXETINE [Concomitant]
     Active Substance: FLUOXETINE HYDROCHLORIDE
     Indication: PRODUCT USED FOR UNKNOWN INDICATION
  4. HUMIRA [Suspect]
     Active Substance: ADALIMUMAB
     Indication: PSORIASIS
     Route: 058
     Dates: start: 201611, end: 201709

REACTIONS (7)
  - Adenomyosis [Recovered/Resolved]
  - Ovarian cyst [Recovered/Resolved]
  - Menstrual disorder [Recovered/Resolved]
  - Back pain [Recovered/Resolved]
  - Pain in extremity [Recovered/Resolved]
  - Uterine leiomyoma [Recovered/Resolved]
  - Cervical spinal stenosis [Recovered/Resolved]

NARRATIVE: CASE EVENT DATE: 201706
